FAERS Safety Report 24410714 (Version 2)
Quarter: 2024Q4

REPORT INFORMATION
  Report Type: Report from Study
  Country: AR (occurrence: AR)
  Receive Date: 20241008
  Receipt Date: 20241025
  Transmission Date: 20250115
  Serious: Yes (Hospitalization, Other)
  Sender: ROCHE
  Company Number: AR-ROCHE-10000099524

PATIENT
  Age: 41 Year
  Sex: Female
  Weight: 54 kg

DRUGS (3)
  1. MABTHERA [Suspect]
     Active Substance: RITUXIMAB
     Indication: Neuromyelitis optica spectrum disorder
     Dosage: DOSE AND FREQUENCY WERE NOT REPORTED
     Route: 065
     Dates: start: 2015, end: 2024
  2. ENSPRYNG [Suspect]
     Active Substance: SATRALIZUMAB-MWGE
     Indication: Neuromyelitis optica spectrum disorder
     Dosage: INITIAL DOSE: 3 DOSES 1 EVERY 15 DAYS OF 120 MG. THEN 1 MONTHLY.24-SEP-2024
     Route: 065
  3. ENSPRYNG [Suspect]
     Active Substance: SATRALIZUMAB-MWGE
     Dosage: INITIAL DOSE: 3 DOSES 1 EVERY 15 DAYS OF 120 MG. THEN 1 MONTHLY
     Route: 065

REACTIONS (3)
  - Off label use [Unknown]
  - Headache [Recovered/Resolved]
  - Viral infection [Recovered/Resolved]

NARRATIVE: CASE EVENT DATE: 20150101
